FAERS Safety Report 10285392 (Version 1)
Quarter: 2014Q3

REPORT INFORMATION
  Report Type: Spontaneous
  Country: US (occurrence: US)
  Receive Date: 20140708
  Receipt Date: 20140708
  Transmission Date: 20150326
  Serious: Yes (Other)
  Sender: FDA-Public Use
  Company Number: US-TEVA-492646USA

PATIENT
  Sex: Female

DRUGS (3)
  1. BETASERON [Suspect]
     Active Substance: INTERFERON BETA-1B
  2. COPAXONE [Suspect]
     Active Substance: GLATIRAMER ACETATE
  3. AVONEX [Suspect]
     Active Substance: INTERFERON BETA-1A

REACTIONS (10)
  - Cognitive disorder [Recovered/Resolved]
  - Abasia [Unknown]
  - Multiple sclerosis [Unknown]
  - Renal disorder [Unknown]
  - Lymphatic disorder [Unknown]
  - Asthenia [Recovered/Resolved]
  - Malaise [Unknown]
  - Primary progressive multiple sclerosis [Unknown]
  - Lung disorder [Unknown]
  - Paraesthesia [Unknown]
